FAERS Safety Report 9551523 (Version 1)
Quarter: 2013Q3

REPORT INFORMATION
  Report Type: Spontaneous
  Country: AU (occurrence: AU)
  Receive Date: 20130925
  Receipt Date: 20130925
  Transmission Date: 20140515
  Serious: Yes (Other)
  Sender: FDA-Public Use
  Company Number: AU-CELGENEUS-008-50794-13091764

PATIENT
  Age: 63 Year
  Sex: Male

DRUGS (1)
  1. VIDAZA [Suspect]
     Indication: ACUTE MYELOID LEUKAEMIA
     Route: 058

REACTIONS (3)
  - Tachycardia [Unknown]
  - Blood pressure decreased [Unknown]
  - Haemoglobin decreased [Unknown]
